FAERS Safety Report 8087933-2 (Version None)
Quarter: 2012Q1

REPORT INFORMATION
  Report Type: 
  Country: None (occurrence: None)
  Receive Date: 20120130
  Receipt Date: 20120124
  Transmission Date: 20120608
  Serious: Yes (Other)
  Sender: FDA-Public Use
  Company Number: US-ASTRAZENECA-2011SE74134

PATIENT
  Age: 69 Year
  Sex: Female

DRUGS (3)
  1. PRILOSEC [Suspect]
     Route: 048
  2. NEXIUM [Suspect]
     Indication: HIATUS HERNIA
     Route: 048
  3. NEXIUM [Suspect]
     Indication: MULTIPLE FRACTURES
     Route: 048

REACTIONS (4)
  - OFF LABEL USE [None]
  - SPINAL FRACTURE [None]
  - HIATUS HERNIA [None]
  - DRUG INEFFECTIVE FOR UNAPPROVED INDICATION [None]
